FAERS Safety Report 7474116-X (Version None)
Quarter: 2011Q2

REPORT INFORMATION
  Report Type: 
  Country: None (occurrence: None)
  Receive Date: 20110511
  Receipt Date: 20110502
  Transmission Date: 20111010
  Serious: Yes (Other)
  Sender: FDA-Public Use
  Company Number: US-WATSON-2011-06034

PATIENT
  Sex: Female
  Weight: 86.168 kg

DRUGS (1)
  1. CIPROFLOXACIN HCL [Suspect]
     Indication: PRODUCT USED FOR UNKNOWN INDICATION
     Dosage: UNK
     Route: 048

REACTIONS (5)
  - EXOSTOSIS [None]
  - TENDON RUPTURE [None]
  - TENDONITIS [None]
  - LOCAL SWELLING [None]
  - PAIN IN EXTREMITY [None]
